FAERS Safety Report 23312002 (Version 1)
Quarter: 2023Q4

REPORT INFORMATION
  Report Type: Spontaneous
  Country: US (occurrence: US)
  Receive Date: 20231219
  Receipt Date: 20231219
  Transmission Date: 20240109
  Serious: Yes (Other)
  Sender: FDA-Public Use
  Company Number: US-JNJFOC-20231226689

PATIENT

DRUGS (2)
  1. IMBRUVICA [Suspect]
     Active Substance: IBRUTINIB
     Indication: Chronic lymphocytic leukaemia
     Route: 048
  2. VENETOCLAX [Suspect]
     Active Substance: VENETOCLAX
     Indication: Chronic lymphocytic leukaemia
     Route: 048

REACTIONS (15)
  - Neoplasm [Unknown]
  - Dizziness [Unknown]
  - Diarrhoea [Unknown]
  - Lymphopenia [Unknown]
  - Blood lactate dehydrogenase increased [Unknown]
  - Thrombocytopenia [Unknown]
  - Anaemia [Unknown]
  - Vomiting [Unknown]
  - Hypocalcaemia [Unknown]
  - Nausea [Unknown]
  - Influenza like illness [Unknown]
  - Weight decreased [Unknown]
  - COVID-19 [Unknown]
  - Neutropenia [Unknown]
  - Hypertension [Unknown]
